FAERS Safety Report 8564156-1 (Version None)
Quarter: 2012Q3

REPORT INFORMATION
  Report Type: 
  Country: None (occurrence: None)
  Receive Date: 20120803
  Receipt Date: 20120724
  Transmission Date: 20120928
  Serious: Yes (Hospitalization)
  Sender: FDA-Public Use
  Company Number: CA-JNJFOC-20120713685

PATIENT
  Sex: Female
  Weight: 59 kg

DRUGS (6)
  1. FOLIC ACID [Concomitant]
     Route: 065
  2. SYNTHROID [Concomitant]
     Route: 065
  3. REMICADE [Suspect]
     Indication: RHEUMATOID ARTHRITIS
     Route: 042
     Dates: start: 20080101
  4. MOLIPAXIN [Concomitant]
     Route: 065
  5. TYLENOL W/ CODEINE NO. 3 [Concomitant]
     Route: 065
  6. PLAQUENIL [Concomitant]
     Route: 065

REACTIONS (4)
  - JOINT SWELLING [None]
  - ARTHRALGIA [None]
  - PYREXIA [None]
  - CHILLS [None]
